FAERS Safety Report 6199155-0 (Version None)
Quarter: 2009Q2

REPORT INFORMATION
  Report Type: 
  Country: None (occurrence: None)
  Receive Date: 20090522
  Receipt Date: 20090213
  Transmission Date: 20091009
  Serious: No
  Sender: FDA-Public Use
  Company Number: A0768686A

PATIENT
  Age: 59 Year
  Sex: Male

DRUGS (7)
  1. VERAMYST [Suspect]
     Route: 045
     Dates: start: 20081201, end: 20090101
  2. ASPIRIN [Concomitant]
  3. SAW PALMETTO [Concomitant]
  4. COSAMIN [Concomitant]
  5. FISH OIL [Concomitant]
  6. LISINOPRIL [Concomitant]
  7. HYDROCHLOROTHIAZIDE [Concomitant]

REACTIONS (1)
  - DRUG INEFFECTIVE [None]
